FAERS Safety Report 4303243-0 (Version None)
Quarter: 2004Q1

REPORT INFORMATION
  Report Type: 
  Country: None (occurrence: None)
  Receive Date: 20040223
  Receipt Date: 20040213
  Transmission Date: 20041129
  Serious: Yes (Other)
  Sender: FDA-Public Use
  Company Number: 2004-02-1104

PATIENT
  Age: 31 Year
  Sex: Female

DRUGS (1)
  1. INTRON A [Suspect]
     Indication: MALIGNANT MELANOMA
     Dosage: 20 MIU TIW
     Dates: start: 20030519, end: 20040206

REACTIONS (6)
  - ALOPECIA [None]
  - BODY TEMPERATURE INCREASED [None]
  - DRY SKIN [None]
  - FATIGUE [None]
  - LYMPHOCELE [None]
  - NEUTROPHIL COUNT DECREASED [None]
